FAERS Safety Report 8442091-7 (Version None)
Quarter: 2012Q2

REPORT INFORMATION
  Report Type: 
  Country: None (occurrence: None)
  Receive Date: 20120615
  Receipt Date: 20120312
  Transmission Date: 20120825
  Serious: No
  Sender: FDA-Public Use
  Company Number: US-NOVEN-12US004275

PATIENT
  Age: 11 Year
  Sex: Male

DRUGS (3)
  1. MULTI-VITAMINS [Concomitant]
     Indication: PROPHYLAXIS
     Dosage: 1 TAB
     Route: 048
  2. DAYTRANA [Suspect]
     Indication: CONCUSSION
  3. DAYTRANA [Suspect]
     Indication: ATTENTION DEFICIT/HYPERACTIVITY DISORDER
     Dosage: 15 MG, QD
     Route: 062
     Dates: start: 20120311

REACTIONS (3)
  - OFF LABEL USE [None]
  - LOGORRHOEA [None]
  - NAUSEA [None]
